FAERS Safety Report 6761547-6 (Version None)
Quarter: 2010Q2

REPORT INFORMATION
  Report Type: 
  Country: None (occurrence: None)
  Receive Date: 20100609
  Receipt Date: 20100601
  Transmission Date: 20101027
  Serious: Yes (Hospitalization)
  Sender: FDA-Public Use
  Company Number: US-BIOGENIDEC-2009BI027466

PATIENT
  Age: 57 Year
  Sex: Male

DRUGS (2)
  1. AVONEX [Suspect]
     Indication: MULTIPLE SCLEROSIS
     Route: 030
  2. AVONEX [Suspect]
     Route: 030

REACTIONS (5)
  - BENIGN PROSTATIC HYPERPLASIA [None]
  - CERVICAL MYELOPATHY [None]
  - CERVICOBRACHIAL SYNDROME [None]
  - GLUCOSE TOLERANCE IMPAIRED [None]
  - NEURALGIA [None]
